FAERS Safety Report 5827209-4 (Version None)
Quarter: 2008Q3

REPORT INFORMATION
  Report Type: 
  Country: None (occurrence: None)
  Receive Date: 20080725
  Receipt Date: 20061024
  Transmission Date: 20090109
  Serious: Yes (Hospitalization)
  Sender: FDA-Public Use
  Company Number: 000#5#2006-00430

PATIENT
  Age: 70 Year
  Sex: Female

DRUGS (63)
  1. ROTIGOTINE (DOSE UNKNOWN), PATCH (SILICONE) (ROTIGOTINE) [Suspect]
     Indication: PARKINSON'S DISEASE
     Dosage: 12 MG/23H 912 MG/24H 1 IN 1 DAYS, TRANSDERMAL
     Route: 062
     Dates: start: 20050522, end: 20071017
  2. ALENDRONATE SODIUM [Concomitant]
  3. ACETYLSALICYLIC ACID SRT [Concomitant]
  4. CALCIUM GLUBIONATE (CALCIUM GLUBIONATE) [Concomitant]
  5. CARBIDOPA, LEVODOPA (CARBIDOPA, LEVODOPA) [Concomitant]
  6. ACETAMINOPHEN [Concomitant]
  7. SELEGILINE HYDROCHLORIDE (SILEGILINE HYDROCHLORIDE) [Concomitant]
  8. DOMPERIDONE (COMPERIDONE) [Concomitant]
  9. AMITRIPTLINE HYDROCHLORIDE TAB [Concomitant]
  10. CODEINE PHOSPHATE, PARACETAMOL (CODEINE PHOSPHATE, PARACETAMOL) [Concomitant]
  11. CAPSAICIN (CAPSAICIN) [Concomitant]
  12. INFLUENZA VIRUS VACCINE POLYVALENT (INFLUENZA VIRUS VACCINE POLYVALENT [Concomitant]
  13. IBUPROFEN [Concomitant]
  14. TENOXICAM (TENOCIXAM) [Concomitant]
  15. ENTACAPONE (ENTACAPONE) [Concomitant]
  16. ORPHENADRINE CITRATE [Concomitant]
  17. QUETIAPINE FUMARATE [Concomitant]
  18. ANESTHETICS, LOCAL [Concomitant]
  19. ORPHENADRINE HYDROCHLORIDE (ORPHENADRINE HYDROCHLORIDE) [Concomitant]
  20. BLACK CURRANT EXTRACT [Concomitant]
  21. SODIUM CHLORIDE 0.9% [Concomitant]
  22. SELEGILINE (SELEGILINE) [Concomitant]
  23. ACETAMINOPHEN [Concomitant]
  24. HYDROXOCOBALAMIN (HYDROXOCOBALAMIN) [Concomitant]
  25. FENTANYL [Concomitant]
  26. PROPOFOL [Concomitant]
  27. ROCURONIUM BROMIDE [Concomitant]
  28. PHENYLEPHRINE (PHENYLEPHRINE) [Concomitant]
  29. MORPHINE [Concomitant]
  30. CEFAZOLIN [Concomitant]
  31. OXYGEN (OXYGEN) [Concomitant]
  32. CALCIUM CARBONATE (CALCIUM CARBONATE) [Concomitant]
  33. FOLIC ACID [Concomitant]
  34. COLECALCIFEROL (COLFECALCIFEROL) [Concomitant]
  35. OMEPRAZOLE [Concomitant]
  36. SENNA ALEXANDRIA, DOCUSATE SODIUM [Concomitant]
  37. CODEINE PROSPHATE (CODEINE PHOSPHATE) [Concomitant]
  38. DEXAMETHASONE TAB [Concomitant]
  39. LACTULOSE [Concomitant]
  40. ENOXAPARIN SODIUM [Concomitant]
  41. PLANTAGO OVATA (PSYLLIUM HYDROPHILIC MUCILLOID) [Concomitant]
  42. ZOPLICONE (ZOPLICONE) [Concomitant]
  43. SIMETICONE, ALUMINIUM HYDROXIDE GEL, DRIED, MAGNESIUM HYDROXIDE  (ALIM [Concomitant]
  44. CITALOPRAM HYDROBROMIDE [Concomitant]
  45. LORAZEPAM [Concomitant]
  46. OXYBUTYNIN CHLORIDE [Concomitant]
  47. TRIMETHOPRIM [Concomitant]
  48. NORFLOXACIN [Concomitant]
  49. EPHEDRINE SUL CAP [Concomitant]
  50. ATROPINE [Concomitant]
  51. CALCIUM CCHLORIDE DIHYDRATE, POTASSIUM CHLORIDE, SODIUM CHLORIDE, SODI [Concomitant]
  52. GLODOSE [Concomitant]
  53. RED BLOOD CELLS [Concomitant]
  54. ONDAMSETRON (ONDAMSETRON) [Concomitant]
  55. CYCLINE (CYCLIZINE) [Concomitant]
  56. FRUIT DRINK [Concomitant]
  57. GLYCERIN (GLYCEROL) [Concomitant]
  58. AMOXICILLIN [Concomitant]
  59. POTASSIUM CHLORIDE [Concomitant]
  60. SODIUM BICARBONATE, TARTARIC ACID, CITRIC ACID ANHYDROUS, SODIUM CITRA [Concomitant]
  61. FUROSEMIDE [Concomitant]
  62. DICLOFENAC SODIUM [Concomitant]
  63. TEMOXICAM (TENOXICAM) [Concomitant]

REACTIONS (29)
  - ARTHRALGIA [None]
  - BONE GRAFT [None]
  - CATARACT [None]
  - CONFUSIONAL STATE [None]
  - CONTUSION [None]
  - DECUBITUS ULCER [None]
  - DISORIENTATION [None]
  - DIZZINESS [None]
  - DYSARTHRIA [None]
  - FAECAL INCONTINENCE [None]
  - FALL [None]
  - FRACTURE DISPLACEMENT [None]
  - HAEMOGLOBIN DECREASED [None]
  - HALLUCINATION, VISUAL [None]
  - LUMBAR SPINAL STENOSIS [None]
  - MOBILITY DECREASED [None]
  - ORTHOSTATIC HYPOTENSION [None]
  - OSTEOARTHRITIS [None]
  - OSTEOPOROSIS [None]
  - PARAPLEGIA [None]
  - POST PROCEDURAL COMPLICATION [None]
  - PROCEDURAL NAUSEA [None]
  - SLEEP ATTACKS [None]
  - SOMNOLENCE [None]
  - SPINAL COMPRESSION FRACTURE [None]
  - TIBIA FRACTURE [None]
  - TREMOR [None]
  - URINARY RETENTION [None]
  - URINARY TRACT INFECTION [None]
